FAERS Safety Report 9922619 (Version 2)
Quarter: 2014Q2

REPORT INFORMATION
  Report Type: Report from Study
  Country: JP (occurrence: JP)
  Receive Date: 20140225
  Receipt Date: 20140403
  Transmission Date: 20141212
  Serious: Yes (Hospitalization)
  Sender: FDA-Public Use
  Company Number: JP-TAKEDA-2014TJP001772

PATIENT
  Age: 71 Year
  Sex: Male
  Weight: 70 kg

DRUGS (9)
  1. ALOGLIPTIN [Suspect]
     Indication: TYPE 2 DIABETES MELLITUS
     Dosage: 25 MG, QD
     Route: 048
     Dates: start: 20101222
  2. SEIBULE [Concomitant]
     Indication: TYPE 2 DIABETES MELLITUS
     Dosage: 150 MG, 1 DAYS
     Route: 048
     Dates: start: 20120222
  3. AMLODIPINE                         /00972402/ [Concomitant]
     Dosage: 5 MG, 1 DAYS
     Route: 048
  4. MICARDIS [Concomitant]
     Dosage: 20 MG, 1 DAYS
     Route: 048
  5. URIEF [Concomitant]
     Dosage: 8 MG, 1 DAYS
     Route: 048
  6. BAYASPIRIN [Concomitant]
     Dosage: 100 MG, 1 DAYS
     Route: 048
     Dates: start: 20120323
  7. RADEN [Concomitant]
     Dosage: 300 MG, 1 DAYS
     Route: 048
     Dates: start: 20120323
  8. ATORVASTATIN                       /01326102/ [Concomitant]
     Dosage: 5 MG, 1 DAYS
     Route: 048
     Dates: start: 20120323
  9. PLAVIX [Concomitant]
     Dosage: 75 MG, 1 DAYS
     Route: 048
     Dates: start: 20120323

REACTIONS (1)
  - Angina pectoris [Recovering/Resolving]
